FAERS Safety Report 8609188-X (Version None)
Quarter: 2012Q3

REPORT INFORMATION
  Report Type: 
  Country: None (occurrence: None)
  Receive Date: 20120821
  Receipt Date: 20120813
  Transmission Date: 20120928
  Serious: Yes (Other)
  Sender: FDA-Public Use
  Company Number: US-ABBOTT-11P-163-0728037-00

PATIENT
  Sex: Male
  Weight: 120.31 kg

DRUGS (7)
  1. LEVAMIR [Concomitant]
     Indication: BLOOD GLUCOSE INCREASED
     Dates: start: 20100101
  2. ZYRTEC [Concomitant]
     Indication: HYPERSENSITIVITY
  3. PRILOSEC [Concomitant]
     Indication: GASTRITIS
  4. HUMALOG [Concomitant]
     Indication: BLOOD GLUCOSE INCREASED
     Dates: start: 20100101
  5. HUMIRA [Suspect]
     Indication: PSORIATIC ARTHROPATHY
     Dates: start: 20080101, end: 20090101
  6. HUMIRA [Suspect]
     Dates: start: 20120501
  7. ALCOHOL [Suspect]
     Indication: PRODUCT USED FOR UNKNOWN INDICATION
     Dates: start: 20091001

REACTIONS (16)
  - FATIGUE [None]
  - HEPATOMEGALY [None]
  - VOMITING [None]
  - LIVER INJURY [None]
  - HEADACHE [None]
  - HEPATIC VEIN DILATATION [None]
  - OEDEMA PERIPHERAL [None]
  - INCORRECT DRUG ADMINISTRATION DURATION [None]
  - HEPATIC FIBROSIS [None]
  - HEPATIC CIRRHOSIS [None]
  - SPLEEN DISORDER [None]
  - DYSPNOEA [None]
  - POLLAKIURIA [None]
  - PORTAL HYPERTENSION [None]
  - SPLENOMEGALY [None]
  - DIABETES MELLITUS INADEQUATE CONTROL [None]
